FAERS Safety Report 14805221 (Version 7)
Quarter: 2018Q3

REPORT INFORMATION
  Report Type: Spontaneous
  Country: BE (occurrence: BE)
  Receive Date: 20180425
  Receipt Date: 20180812
  Transmission Date: 20181010
  Serious: Yes (Other)
  Sender: FDA-Public Use
  Company Number: BE-ROCHE-2111123

PATIENT
  Age: 66 Year
  Sex: Female

DRUGS (8)
  1. SELOZOK [Suspect]
     Active Substance: METOPROLOL SUCCINATE
     Indication: PRODUCT USED FOR UNKNOWN INDICATION
     Dosage: GASTRO?RESISTANT TABLET?CRUSHED TABLETS UP TO FIVE TIMES A DAY
     Route: 065
  2. LORAZEPAM. [Suspect]
     Active Substance: LORAZEPAM
     Indication: PRODUCT USED FOR UNKNOWN INDICATION
     Dosage: CRUSHED TABLETS UP TO FIVE TIMES A DAY
     Route: 065
  3. DIAZEPAM. [Suspect]
     Active Substance: DIAZEPAM
     Indication: PRODUCT USED FOR UNKNOWN INDICATION
     Dosage: CRUSHED TABLETS UP TO FIVE TIMES A DAY
     Route: 065
  4. OMEPRAZOLE. [Suspect]
     Active Substance: OMEPRAZOLE
     Indication: PRODUCT USED FOR UNKNOWN INDICATION
     Dosage: CRUSHED TABLETS UP TO FIVE TIMES A DAY
     Route: 065
  5. ROPINIROLE. [Suspect]
     Active Substance: ROPINIROLE
     Indication: PRODUCT USED FOR UNKNOWN INDICATION
     Dosage: CRUSHED TABLETS UP TO FIVE TIMES A DAY
     Route: 065
  6. TETRAZEPAM [Suspect]
     Active Substance: TETRAZEPAM
     Indication: PRODUCT USED FOR UNKNOWN INDICATION
     Dosage: CRUSHED TABLETS UP TO FIVE TIMES A DAY
     Route: 065
  7. CLOZAPINE. [Suspect]
     Active Substance: CLOZAPINE
     Indication: PRODUCT USED FOR UNKNOWN INDICATION
     Dosage: CRUSHED TABLETS UP TO FIVE TIMES A DAY
     Route: 065
  8. LEVODOPA [Suspect]
     Active Substance: LEVODOPA
     Indication: PRODUCT USED FOR UNKNOWN INDICATION
     Dosage: CRUSHED TABLETS UP TO FIVE TIMES A DAY
     Route: 065

REACTIONS (9)
  - Eczema eyelids [Recovered/Resolved]
  - Burning sensation [Recovered/Resolved]
  - Dermatitis contact [Recovered/Resolved]
  - Pruritus [Recovered/Resolved]
  - Dermatitis [Recovered/Resolved]
  - Therapeutic product cross-reactivity [Recovered/Resolved]
  - Wrong technique in product usage process [Unknown]
  - Accidental exposure to product [Unknown]
  - Eczema [Unknown]

NARRATIVE: CASE EVENT DATE: 2009
